FAERS Safety Report 20076744 (Version 1)
Quarter: 2021Q4

REPORT INFORMATION
  Report Type: Spontaneous
  Country: US (occurrence: None)
  Receive Date: 20211115
  Receipt Date: 20211115
  Transmission Date: 20220303
  Serious: No
  Sender: FDA-Public Use
  Company Number: None

PATIENT

DRUGS (2)
  1. METHIMAZOLE [Suspect]
     Active Substance: METHIMAZOLE
     Route: 048
  2. MEBENDAZOLE [Suspect]
     Active Substance: MEBENDAZOLE
     Route: 048

REACTIONS (2)
  - Product name confusion [None]
  - Product storage error [None]
